FAERS Safety Report 22069655 (Version 1)
Quarter: 2023Q1

REPORT INFORMATION
  Report Type: Spontaneous
  Country: FR (occurrence: FR)
  Receive Date: 20230307
  Receipt Date: 20230307
  Transmission Date: 20230417
  Serious: Yes (Hospitalization)
  Sender: FDA-Public Use
  Company Number: None

PATIENT
  Age: 51 Year
  Sex: Male
  Weight: 78 kg

DRUGS (1)
  1. MEROPENEM [Suspect]
     Active Substance: MEROPENEM
     Indication: Arthritis infective
     Dosage: 6 G, 1X/DAY
     Route: 042
     Dates: start: 20230130, end: 20230209

REACTIONS (3)
  - Acute kidney injury [Recovering/Resolving]
  - Eosinophilia [Recovered/Resolved]
  - Off label use [Unknown]

NARRATIVE: CASE EVENT DATE: 20230130
